FAERS Safety Report 5808998-1 (Version None)
Quarter: 2008Q3

REPORT INFORMATION
  Report Type: 
  Country: None (occurrence: None)
  Receive Date: 20080710
  Receipt Date: 20080710
  Transmission Date: 20090109
  Serious: No
  Sender: FDA-Public Use
  Company Number: None

PATIENT
  Sex: Male
  Weight: 83.9154 kg

DRUGS (2)
  1. LEVAQUIN [Suspect]
     Indication: UPPER RESPIRATORY TRACT INFECTION
     Dates: start: 20080306, end: 20080319
  2. LEVAQUIN [Suspect]
     Indication: UPPER RESPIRATORY TRACT INFECTION
     Dates: start: 20080514, end: 20080520

REACTIONS (3)
  - BURNING SENSATION [None]
  - MUSCULOSKELETAL STIFFNESS [None]
  - TENDON DISORDER [None]
